FAERS Safety Report 7742455-0 (Version None)
Quarter: 2011Q3

REPORT INFORMATION
  Report Type: 
  Country: None (occurrence: None)
  Receive Date: 20110830
  Receipt Date: 20110819
  Transmission Date: 20111222
  Serious: Yes (Hospitalization, Other)
  Sender: FDA-Public Use
  Company Number: 2010SP044535

PATIENT
  Age: 28 Year
  Sex: Female

DRUGS (4)
  1. GINSENG [Concomitant]
  2. NUVARING [Suspect]
     Indication: MENSTRUAL CYCLE MANAGEMENT
     Dates: start: 20010501, end: 20080801
  3. NUVARING [Suspect]
     Indication: CONTRACEPTION
     Dates: start: 20010501, end: 20080801
  4. VITAMIN B COMPLEX CAP [Concomitant]

REACTIONS (7)
  - PLEURISY [None]
  - PULMONARY EMBOLISM [None]
  - ABDOMINAL PAIN UPPER [None]
  - PLEURAL EFFUSION [None]
  - OVARIAN CYST [None]
  - ELECTROCARDIOGRAM ST-T CHANGE [None]
  - GASTROOESOPHAGEAL REFLUX DISEASE [None]
